FAERS Safety Report 4824988-X (Version None)
Quarter: 2005Q4

REPORT INFORMATION
  Report Type: 
  Country: None (occurrence: None)
  Receive Date: 20051110
  Receipt Date: 20051031
  Transmission Date: 20060501
  Serious: Yes (Hospitalization)
  Sender: FDA-Public Use
  Company Number: 2005UW16572

PATIENT
  Age: 68 Year
  Sex: Male

DRUGS (13)
  1. CRESTOR [Suspect]
     Indication: BLOOD CHOLESTEROL INCREASED
     Route: 048
  2. AMITRIPTYLINE HCL [Suspect]
     Route: 048
  3. AMITRIPTYLINE HCL [Suspect]
     Route: 048
     Dates: end: 20051101
  4. ASPIRIN [Concomitant]
  5. CELEXA [Concomitant]
  6. STOOL SOFTENER [Concomitant]
  7. GABAPENTIN [Concomitant]
     Indication: NEUROPATHY
  8. LASIX [Concomitant]
     Indication: OEDEMA PERIPHERAL
  9. LASIX [Concomitant]
     Dosage: DOSE INCREASED
  10. METOPROLOL [Concomitant]
  11. HEPARIN [Concomitant]
     Indication: IMMOBILE
  12. POTASSIUM CHLORIDE [Concomitant]
     Indication: HYPOKALAEMIA
  13. METOLAZONE [Concomitant]
     Indication: OEDEMA PERIPHERAL

REACTIONS (2)
  - LIPIDS DECREASED [None]
  - URINARY RETENTION [None]
